FAERS Safety Report 9697795 (Version 2)
Quarter: 2013Q4

REPORT INFORMATION
  Report Type: Spontaneous
  Country: AR (occurrence: AR)
  Receive Date: 20131120
  Receipt Date: 20131213
  Transmission Date: 20140711
  Serious: Yes (Other)
  Sender: FDA-Public Use
  Company Number: PHHY2013AR129911

PATIENT
  Sex: Male

DRUGS (1)
  1. TASIGNA [Suspect]
     Indication: CHRONIC MYELOID LEUKAEMIA
     Dosage: 300 MG, BID
     Route: 048
     Dates: start: 201302, end: 20131112

REACTIONS (3)
  - Cardiomyopathy [Recovering/Resolving]
  - Chest pain [Recovering/Resolving]
  - Electrocardiogram ST segment depression [Recovering/Resolving]
